FAERS Safety Report 8511463-4 (Version None)
Quarter: 2012Q3

REPORT INFORMATION
  Report Type: 
  Country: None (occurrence: None)
  Receive Date: 20120716
  Receipt Date: 20120711
  Transmission Date: 20120928
  Serious: No
  Sender: FDA-Public Use
  Company Number: US-PFIZER INC-2012167423

PATIENT
  Sex: Male

DRUGS (2)
  1. ASPIRIN [Concomitant]
     Dosage: UNK
  2. IBUPROFEN (ADVIL) [Suspect]
     Indication: MYALGIA
     Dosage: 4X200MG, DAILY
     Route: 048
     Dates: start: 20120710

REACTIONS (1)
  - DRUG INEFFECTIVE [None]
